FAERS Safety Report 4883112-8 (Version None)
Quarter: 2006Q1

REPORT INFORMATION
  Report Type: 
  Country: None (occurrence: None)
  Receive Date: 20060118
  Receipt Date: 20060106
  Transmission Date: 20060701
  Serious: Yes (Hospitalization)
  Sender: FDA-Public Use
  Company Number: US-AVENTIS-200610201US

PATIENT
  Sex: Female

DRUGS (2)
  1. KETEK [Suspect]
     Indication: PERTUSSIS
     Dates: start: 20051227, end: 20060105
  2. CLARINEX [Concomitant]
     Dosage: DOSE: UNK

REACTIONS (2)
  - DRUG INEFFECTIVE [None]
  - RESPIRATORY DISTRESS [None]
